FAERS Safety Report 14825688 (Version 3)
Quarter: 2018Q2

REPORT INFORMATION
  Report Type: Spontaneous
  Country: CZ (occurrence: CZ)
  Receive Date: 20180430
  Receipt Date: 20180525
  Transmission Date: 20180711
  Serious: Yes (Death, Hospitalization, Other)
  Sender: FDA-Public Use
  Company Number: CZ-B.I. PHARMACEUTICALS,INC./RIDGEFIELD-2018-BI-022744

PATIENT
  Age: 77 Year
  Sex: Female

DRUGS (7)
  1. ACTILYSE [Concomitant]
     Active Substance: ALTEPLASE
     Indication: CEREBROVASCULAR ACCIDENT
     Route: 065
     Dates: start: 20180330, end: 20180330
  2. PRAXBIND [Suspect]
     Active Substance: IDARUCIZUMAB
     Indication: ISCHAEMIC STROKE
  3. NITROGLYCERIN. [Concomitant]
     Active Substance: NITROGLYCERIN
     Indication: PRODUCT USED FOR UNKNOWN INDICATION
     Route: 065
  4. PRAXBIND [Suspect]
     Active Substance: IDARUCIZUMAB
     Indication: PROCOAGULANT THERAPY
     Route: 065
     Dates: start: 20180330, end: 20180330
  5. BETAXA [Concomitant]
     Indication: PRODUCT USED FOR UNKNOWN INDICATION
     Route: 048
  6. SORTIS [Concomitant]
     Active Substance: ATORVASTATIN
     Indication: PRODUCT USED FOR UNKNOWN INDICATION
     Route: 048
  7. TRIPLIXAN [Concomitant]
     Indication: PRODUCT USED FOR UNKNOWN INDICATION
     Dosage: STRENGTH:  10MG/2.5MG/5MG
     Route: 048

REACTIONS (2)
  - Ischaemic stroke [Fatal]
  - Basilar artery occlusion [Fatal]

NARRATIVE: CASE EVENT DATE: 20180330
